FAERS Safety Report 6269576-6 (Version None)
Quarter: 2009Q3

REPORT INFORMATION
  Report Type: 
  Country: None (occurrence: None)
  Receive Date: 20090714
  Receipt Date: 20090701
  Transmission Date: 20100115
  Serious: Yes (Death)
  Sender: FDA-Public Use
  Company Number: A0795918A

PATIENT
  Age: 86 Year
  Sex: Female

DRUGS (1)
  1. ASPIRIN + CAFFEINE + PARACETAMOL POWDER (ACETAMINOPHEN + ASPIRIN + [Suspect]
     Dosage: ORAL
     Route: 048

REACTIONS (1)
  - GASTRIC DISORDER [None]
